FAERS Safety Report 5921971-8 (Version None)
Quarter: 2008Q3

REPORT INFORMATION
  Report Type: 
  Country: None (occurrence: None)
  Receive Date: 20080909
  Receipt Date: 20080623
  Transmission Date: 20090109
  Serious: Yes (Hospitalization)
  Sender: FDA-Public Use
  Company Number: 163-20785-08061445

PATIENT
  Age: 69 Year
  Sex: Female

DRUGS (7)
  1. THALOMID [Suspect]
     Indication: MULTIPLE MYELOMA
     Dosage: 200 MG, 4 IN 1 D, ORAL
     Route: 048
     Dates: start: 20080512, end: 20080618
  2. DECADRON [Suspect]
     Indication: DRUG USE FOR UNKNOWN INDICATION
  3. REGAN (METOCLOPRAMIDE) [Concomitant]
  4. ACIPHEX [Concomitant]
  5. INDERAL (METOPROLOL) [Concomitant]
  6. PAXIL [Concomitant]
  7. ESTROGEN (ESTROGENS) (POULTICE OR PATCH) [Concomitant]

REACTIONS (5)
  - BONE PAIN [None]
  - BRONCHOPNEUMONIA [None]
  - DRUG INEFFECTIVE [None]
  - FATIGUE [None]
  - PALPITATIONS [None]
